FAERS Safety Report 9066652 (Version 1)
Quarter: 2013Q1

REPORT INFORMATION
  Report Type: Report from Study
  Country: US (occurrence: US)
  Receive Date: 20130131
  Receipt Date: 20130131
  Transmission Date: 20140127
  Serious: No
  Sender: FDA-Public Use
  Company Number: US-ABBOTT-12P-163-1013212-00

PATIENT
  Age: 49 Year
  Sex: Female

DRUGS (12)
  1. HUMIRA [Suspect]
     Indication: PSORIASIS
     Dates: start: 20121024
  2. HUMALOG [Concomitant]
     Indication: DIABETES MELLITUS
  3. VICTOZA [Concomitant]
     Indication: DIABETES MELLITUS
     Dosage: 1.8 MG DAILY
  4. METFORMIN [Concomitant]
     Indication: DIABETES MELLITUS
  5. NEXIUM [Concomitant]
     Indication: PRODUCT USED FOR UNKNOWN INDICATION
     Dosage: 20 MG DAILY
  6. LOSARTAN/HCT [Concomitant]
     Indication: HYPERTENSION
     Dosage: 12.5 MG DAILY
  7. ASPIRIN [Concomitant]
     Indication: BLOOD DISORDER
     Dosage: 81 MG DAILY
  8. METOPROLOL [Concomitant]
     Indication: BLOOD PRESSURE
     Dosage: 50 MG DAILY
  9. PLAVIX [Concomitant]
     Indication: BLOOD DISORDER
     Dosage: 75 MG DAILY
  10. ISOSORB [Concomitant]
     Indication: CARDIAC DISORDER
     Dosage: 30 MG DAILY
  11. COMBIGAN [Concomitant]
     Indication: RETINAL DISORDER
     Dosage: EYE DROPS - DAILY
  12. PRAVASTATIN [Concomitant]
     Indication: BLOOD CHOLESTEROL
     Dosage: DAILY

REACTIONS (5)
  - Device malfunction [Recovered/Resolved]
  - Device malfunction [Recovered/Resolved]
  - Incorrect dose administered [Recovered/Resolved]
  - Incorrect dose administered [Recovered/Resolved]
  - Injection site pain [Recovered/Resolved]
